FAERS Safety Report 21381953 (Version 1)
Quarter: 2022Q3

REPORT INFORMATION
  Report Type: Spontaneous
  Country: PL (occurrence: PL)
  Receive Date: 20220927
  Receipt Date: 20220927
  Transmission Date: 20221027
  Serious: Yes (Other)
  Sender: FDA-Public Use
  Company Number: PL-ORGANON-O2209POL001944

PATIENT
  Sex: Female
  Weight: 50 kg

DRUGS (1)
  1. ETONOGESTREL [Suspect]
     Active Substance: ETONOGESTREL
     Dosage: 1 IMPLANT

REACTIONS (2)
  - Device expulsion [Recovered/Resolved]
  - Complication of device insertion [Recovered/Resolved]
